FAERS Safety Report 4658420-6 (Version None)
Quarter: 2005Q2

REPORT INFORMATION
  Report Type: 
  Country: None (occurrence: None)
  Receive Date: 20050509
  Receipt Date: 20050425
  Transmission Date: 20051028
  Serious: Yes (Hospitalization, Other)
  Sender: FDA-Public Use
  Company Number: HQWYE479529MAR05

PATIENT
  Age: 58 Year
  Sex: Female
  Weight: 93.07 kg

DRUGS (2)
  1. PREMARIN [Suspect]
     Indication: MENOPAUSAL SYMPTOMS
     Dosage: 0.425 MG DAILY 12 MONTHS IN ERROR, ORAL
     Route: 048
  2. TOPROL-XL [Concomitant]

REACTIONS (7)
  - DRUG DISPENSING ERROR [None]
  - ENDOMETRIAL HYPERPLASIA [None]
  - FALLOPIAN TUBE CYST [None]
  - LEIOMYOMA [None]
  - MEDICATION ERROR [None]
  - OVARIAN CYST [None]
  - UTERINE POLYP [None]
